FAERS Safety Report 22656358 (Version 1)
Quarter: 2023Q2

REPORT INFORMATION
  Report Type: Spontaneous
  Country: US (occurrence: US)
  Receive Date: 20230629
  Receipt Date: 20230629
  Transmission Date: 20230721
  Serious: No
  Sender: FDA-Public Use
  Company Number: US-BRISTOL-MYERS SQUIBB COMPANY-2023-089849

PATIENT
  Sex: Male

DRUGS (1)
  1. KENALOG [Suspect]
     Active Substance: TRIAMCINOLONE ACETONIDE
     Indication: Lichen planopilaris
     Dosage: ROA: INJECTION

REACTIONS (5)
  - Loss of libido [Unknown]
  - Muscular weakness [Unknown]
  - Weight increased [Unknown]
  - Weight decreased [Unknown]
  - Swelling face [Unknown]
